FAERS Safety Report 5440449-1 (Version None)
Quarter: 2007Q3

REPORT INFORMATION
  Report Type: 
  Country: None (occurrence: None)
  Receive Date: 20070831
  Receipt Date: 20070730
  Transmission Date: 20080115
  Serious: Yes (Death, Life-Threatening, Hospitalization)
  Sender: FDA-Public Use
  Company Number: IE-ROCHE-480322

PATIENT
  Age: 75 Year
  Sex: Female
  Weight: 61 kg

DRUGS (5)
  1. XELODA [Suspect]
     Route: 048
     Dates: start: 20061206, end: 20070216
  2. PANTOPRAZOLE SODIUM [Concomitant]
     Indication: OESOPHAGEAL ULCER
     Route: 048
  3. FRUSEMIDE [Concomitant]
     Indication: OEDEMA
     Route: 048
     Dates: start: 20061201, end: 20070201
  4. AMLODIPINE [Concomitant]
     Indication: HYPERTENSION
     Route: 048
  5. ELTROXIN [Concomitant]
     Indication: HYPOTHYROIDISM
     Route: 048

REACTIONS (3)
  - DEEP VEIN THROMBOSIS [None]
  - DISEASE PROGRESSION [None]
  - THROMBOSIS [None]
